FAERS Safety Report 4569195-3 (Version None)
Quarter: 2005Q1

REPORT INFORMATION
  Report Type: 
  Country: None (occurrence: None)
  Receive Date: 20050126
  Receipt Date: 20050126
  Transmission Date: 20050727
  Serious: Yes (Life-Threatening)
  Sender: FDA-Public Use
  Company Number: None

PATIENT
  Age: 73 Year
  Sex: Male
  Weight: 54.5 kg

DRUGS (2)
  1. IRON-DEXTRAN COMPLEX INJ [Suspect]
     Indication: IRON DEFICIENCY ANAEMIA
     Dosage: 25MG, OVER 10 , INTRAVENOUS
     Route: 042
     Dates: start: 20040331, end: 20040331
  2. IRON DEXTRAN [Concomitant]

REACTIONS (3)
  - RESPIRATORY DISTRESS [None]
  - SYSTOLIC HYPERTENSION [None]
  - TACHYPNOEA [None]
